FAERS Safety Report 7108266-4 (Version None)
Quarter: 2010Q4

REPORT INFORMATION
  Report Type: 
  Country: None (occurrence: None)
  Receive Date: 20101117
  Receipt Date: 20101109
  Transmission Date: 20110411
  Serious: Yes (Hospitalization)
  Sender: FDA-Public Use
  Company Number: FR-B.I. PHARMACEUTICALS,INC./RIDGEFIELD-2010-DE-04978DE

PATIENT
  Sex: Female

DRUGS (6)
  1. DABIGATRAN [Suspect]
     Indication: CEREBROVASCULAR ACCIDENT PROPHYLAXIS
     Dosage: STRENGTH AND DAILY DOSE: BLINDED
     Route: 048
     Dates: start: 20090209
  2. DABIGATRAN [Suspect]
     Indication: ATRIAL FIBRILLATION
  3. AMIODARONE HCL [Concomitant]
     Indication: ATRIAL FIBRILLATION
     Dosage: 200 MG
     Route: 048
  4. EUPANTOL [Concomitant]
     Indication: OESOPHAGITIS
     Dosage: 20 MG
     Route: 048
     Dates: start: 20070314
  5. FIXICAL D3 [Concomitant]
     Indication: OSTEOPOROSIS
     Dosage: 1 G
     Route: 048
     Dates: start: 20070119
  6. EUTHYRAL [Concomitant]
     Indication: HYPOTHYROIDISM
     Route: 048
     Dates: start: 19860703

REACTIONS (1)
  - COGNITIVE DISORDER [None]
